FAERS Safety Report 5492334-7 (Version None)
Quarter: 2007Q4

REPORT INFORMATION
  Report Type: 
  Country: None (occurrence: None)
  Receive Date: 20071022
  Receipt Date: 20071010
  Transmission Date: 20080405
  Serious: Yes (Life-Threatening, Hospitalization)
  Sender: FDA-Public Use
  Company Number: GB-BAXTER-2007BH008353

PATIENT
  Age: 4 Month
  Sex: Male
  Weight: 5 kg

DRUGS (12)
  1. GENTAMICIN [Suspect]
     Indication: CYSTIC FIBROSIS
     Route: 042
     Dates: start: 20021123, end: 20021207
  2. GENTAMICIN [Suspect]
     Indication: PSEUDOMONAS INFECTION
     Route: 042
     Dates: start: 20021123, end: 20021207
  3. GENTAMICIN [Suspect]
     Indication: RESPIRATORY DISTRESS
     Route: 042
     Dates: start: 20021123, end: 20021207
  4. CEFTAZIDIME [Suspect]
     Indication: CYSTIC FIBROSIS
     Route: 042
     Dates: start: 20021123, end: 20021207
  5. CEFTAZIDIME [Suspect]
     Indication: PSEUDOMONAS INFECTION
     Route: 042
     Dates: start: 20021123, end: 20021207
  6. CEFTAZIDIME [Suspect]
     Indication: RESPIRATORY DISTRESS
     Route: 042
     Dates: start: 20021123, end: 20021207
  7. ATROVENT [Concomitant]
     Indication: BRONCHOSPASM
     Route: 055
     Dates: start: 20021118, end: 20021219
  8. CIPROFLOXACIN [Concomitant]
     Indication: PSEUDOMONAS INFECTION
     Route: 048
     Dates: start: 20021122, end: 20021123
  9. COLOMYCIN [Concomitant]
     Indication: PSEUDOMONAS INFECTION
     Route: 055
     Dates: start: 20021122, end: 20021123
  10. CREON ^DUPHAR^ [Concomitant]
     Indication: MALNUTRITION
     Route: 048
     Dates: start: 20020903
  11. FLUCLOXACILLIN [Concomitant]
     Indication: PROPHYLAXIS
     Route: 048
     Dates: start: 20020903, end: 20021209
  12. VITAMIN CAP [Concomitant]

REACTIONS (3)
  - BLOOD CREATININE INCREASED [None]
  - DIARRHOEA [None]
  - RENAL FAILURE ACUTE [None]
